FAERS Safety Report 6172837-2 (Version None)
Quarter: 2009Q2

REPORT INFORMATION
  Report Type: 
  Country: None (occurrence: None)
  Receive Date: 20090428
  Receipt Date: 20090416
  Transmission Date: 20091009
  Serious: Yes (Hospitalization)
  Sender: FDA-Public Use
  Company Number: 2009-01516

PATIENT
  Age: 58 Year
  Sex: Male

DRUGS (13)
  1. VELCADE [Suspect]
     Indication: MULTIPLE MYELOMA
     Dosage: 1.3 MG, INTRAVENOUS
     Route: 042
     Dates: start: 20090304, end: 20090403
  2. GABAPENTIN [Concomitant]
  3. WARFARIN SODIUM [Concomitant]
  4. DIAZEPAM [Concomitant]
  5. ACYCLOVIR [Concomitant]
  6. QUININE SULPHATE (QUININE SULFATE) [Concomitant]
  7. OMEPRAZOLE [Concomitant]
  8. PENICILLIN (BENZYLPENICILLIN SODIUM) [Concomitant]
  9. SENNA (SENNA) [Concomitant]
  10. DOSULEPIN (DOSULEPIN) [Concomitant]
  11. MORPHINE SULFATE [Concomitant]
  12. MORPHINE SULFATE [Concomitant]
  13. ACETAMINOPHEN [Concomitant]

REACTIONS (1)
  - FAT NECROSIS [None]
